FAERS Safety Report 12811648 (Version 1)
Quarter: 2016Q4

REPORT INFORMATION
  Report Type: Spontaneous
  Country: US (occurrence: US)
  Receive Date: 20161005
  Receipt Date: 20161005
  Transmission Date: 20170207
  Serious: No
  Sender: FDA-Public Use
  Company Number: US-AMGEN-USASP2016107359

PATIENT
  Age: 77 Year
  Sex: Female

DRUGS (1)
  1. PROLIA [Suspect]
     Active Substance: DENOSUMAB
     Indication: OSTEOPOROSIS POSTMENOPAUSAL
     Dosage: UNK
     Route: 065
     Dates: start: 20160517

REACTIONS (8)
  - Back pain [Unknown]
  - Groin pain [Unknown]
  - Erythema [Unknown]
  - Therapeutic response unexpected [Unknown]
  - Musculoskeletal stiffness [Unknown]
  - Drug effect delayed [Unknown]
  - Pain in extremity [Unknown]
  - Musculoskeletal pain [Unknown]
